FAERS Safety Report 9014017 (Version 1)
Quarter: 2013Q1

REPORT INFORMATION
  Report Type: Spontaneous
  Country: US (occurrence: None)
  Receive Date: 20130109
  Receipt Date: 20130109
  Transmission Date: 20140127
  Serious: Yes (Other)
  Sender: FDA-Public Use
  Company Number: None

PATIENT
  Age: 66 Year
  Sex: Female
  Weight: 75 kg

DRUGS (1)
  1. PREVACID [Suspect]

REACTIONS (4)
  - Sneezing [None]
  - Gastrooesophageal reflux disease [None]
  - Middle insomnia [None]
  - Product substitution issue [None]
